FAERS Safety Report 7901920-3 (Version None)
Quarter: 2011Q4

REPORT INFORMATION
  Report Type: 
  Country: None (occurrence: None)
  Receive Date: 20111108
  Receipt Date: 20111028
  Transmission Date: 20120403
  Serious: Yes (Other)
  Sender: FDA-Public Use
  Company Number: US-BAYER-2011-106864

PATIENT
  Age: 40 Year
  Sex: Female
  Weight: 61.224 kg

DRUGS (15)
  1. LOESTRIN 1.5/30 [Concomitant]
     Dosage: UNK
     Dates: start: 20091201
  2. YAZ [Suspect]
     Indication: ACNE
  3. KAPIDEX [Concomitant]
     Indication: DYSPEPSIA
     Dosage: UNK
     Dates: start: 20090801, end: 20091201
  4. YAZ [Suspect]
     Indication: PREMENSTRUAL SYNDROME
  5. YASMIN [Suspect]
     Indication: CONTRACEPTION
     Dosage: UNK
     Route: 048
     Dates: start: 20040101, end: 20091201
  6. YASMIN [Suspect]
     Indication: ACNE
  7. YASMIN [Suspect]
     Indication: PREMENSTRUAL SYNDROME
  8. ACETAMINOPHEN AND HYDROCODONE BITARTRATE [Concomitant]
     Indication: PAIN
     Dosage: AS NEEDED
     Route: 048
  9. YAZ [Suspect]
     Indication: CONTRACEPTION
     Dosage: UNK
     Route: 048
     Dates: start: 20070101, end: 20070101
  10. ALEVE [Concomitant]
     Dosage: UNK UNK, OW
  11. TOPAMAX [Concomitant]
     Indication: MIGRAINE
     Dosage: UNK
     Dates: start: 20091001
  12. IMITREX [Concomitant]
     Dosage: ONE EVERY DAY, AS NEEDED
     Route: 048
  13. CYCLOBENZAPRINE [Concomitant]
     Dosage: UNK UNK, HS DAILY
     Route: 048
  14. NEXIUM [Concomitant]
     Dosage: 40 MG, UNK DAILY
     Route: 048
  15. LEVOTHYROXINE SODIUM [Concomitant]
     Indication: THYROID DISORDER
     Dosage: UNK
     Dates: start: 20091101

REACTIONS (5)
  - ABDOMINAL PAIN UPPER [None]
  - BILIARY DYSKINESIA [None]
  - CHOLECYSTITIS CHRONIC [None]
  - FAT INTOLERANCE [None]
  - BACK PAIN [None]
